FAERS Safety Report 14310871 (Version 2)
Quarter: 2017Q4

REPORT INFORMATION
  Report Type: Report from Study
  Country: AU (occurrence: AU)
  Receive Date: 20171221
  Receipt Date: 20171222
  Transmission Date: 20180321
  Serious: Yes (Hospitalization)
  Sender: FDA-Public Use
  Company Number: AU-ROCHE-2038054

PATIENT
  Age: 73 Year
  Sex: Male
  Weight: 96.6 kg

DRUGS (46)
  1. OBINUTUZUMAB. [Suspect]
     Active Substance: OBINUTUZUMAB
     Dosage: C1D3, TOTAL VOLUME: 300.0 ML AT INFUSION RATE OF 16.0 ML/HOUR
     Route: 042
     Dates: start: 20160212, end: 20160212
  2. OBINUTUZUMAB. [Suspect]
     Active Substance: OBINUTUZUMAB
     Dosage: C1D9, TOTAL VOLUME: 304.0 ML AT INFUSION RATE OF 30.0 ML/HOUR
     Route: 042
     Dates: start: 20160218, end: 20160218
  3. RABEPRAZOLE [Concomitant]
     Active Substance: RABEPRAZOLE
     Route: 048
     Dates: start: 2009
  4. OBINUTUZUMAB. [Suspect]
     Active Substance: OBINUTUZUMAB
     Indication: B-CELL LYMPHOMA
     Dosage: C1D2, TOTAL VOLUME: 110.0 ML AT INFUSION RATE OF 27.5 ML/HOUR
     Route: 042
     Dates: start: 20160211, end: 20160211
  5. BGB-3111 [Suspect]
     Active Substance: INVESTIGATIONAL PRODUCT
     Dosage: CYCLE 5, 4 CAPSULES
     Route: 065
     Dates: start: 20160601, end: 20160628
  6. BGB-3111 [Suspect]
     Active Substance: INVESTIGATIONAL PRODUCT
     Dosage: CYCLE 10, 4 CAPSULES
     Route: 065
     Dates: start: 20161019, end: 20161115
  7. VALACICLOVIR [Concomitant]
     Active Substance: VALACYCLOVIR HYDROCHLORIDE
     Route: 048
     Dates: start: 20120702
  8. AMOXICILLIN/CLAVULANIC ACID [Concomitant]
     Active Substance: AMOXICILLIN\CLAVULANIC ACID
     Dosage: 875/125 MG
     Route: 048
     Dates: start: 20161110, end: 20161114
  9. OBINUTUZUMAB. [Suspect]
     Active Substance: OBINUTUZUMAB
     Dosage: C3D1, TOTAL VOLUME: 303.0 ML AT INFUSION RATE OF 100.0 MG/HOUR
     Route: 042
     Dates: start: 20160407, end: 20160407
  10. OBINUTUZUMAB. [Suspect]
     Active Substance: OBINUTUZUMAB
     Dosage: C4D1, TOTAL VOLUME: 303.0 ML AT INFUSION RATE OF 100.0 MG/HOUR
     Route: 042
     Dates: start: 20160504, end: 20160504
  11. OBINUTUZUMAB. [Suspect]
     Active Substance: OBINUTUZUMAB
     Dosage: C6D1, TOTAL VOLUME: 304.0 ML AT INFUSION RATE OF 120.0 ML/HOUR
     Route: 042
     Dates: start: 20160629, end: 20160629
  12. BGB-3111 [Suspect]
     Active Substance: INVESTIGATIONAL PRODUCT
     Dosage: CYCLE 12, 4 CAPSULES
     Route: 065
     Dates: start: 20161220, end: 20170116
  13. BGB-3111 [Suspect]
     Active Substance: INVESTIGATIONAL PRODUCT
     Dosage: CYCLE 16, 4 CAPSULES
     Route: 065
     Dates: start: 20170613, end: 20170807
  14. SERETIDE [Concomitant]
     Active Substance: FLUTICASONE PROPIONATE\SALMETEROL XINAFOATE
     Dosage: INHALE 2 PUFFS TWICE DAILY
     Route: 065
     Dates: start: 2012
  15. IRBESARTAN. [Concomitant]
     Active Substance: IRBESARTAN
     Route: 048
     Dates: start: 2003
  16. FILGRASTIM [Concomitant]
     Active Substance: FILGRASTIM
     Dosage: DAILY FRIDAYS AND MONDAYS
     Route: 058
     Dates: start: 20160219
  17. PARACETAMOL [Concomitant]
     Active Substance: ACETAMINOPHEN
     Dosage: PRE OBINUTUZUMAB INFUSION
     Route: 048
     Dates: start: 20160211
  18. DOXYCYCLINE. [Concomitant]
     Active Substance: DOXYCYCLINE
     Route: 048
     Dates: start: 20161105, end: 20161111
  19. BENZYLPENICILLIN [Concomitant]
     Active Substance: PENICILLIN G
     Route: 042
     Dates: start: 20170501, end: 20170514
  20. AMOXYCILLIN [Concomitant]
     Active Substance: AMOXICILLIN
     Route: 048
     Dates: start: 20170515, end: 20170612
  21. ALLOPURINOL. [Concomitant]
     Active Substance: ALLOPURINOL
     Route: 048
     Dates: start: 20160204, end: 20160224
  22. CEFALEXIN [Concomitant]
     Active Substance: CEPHALEXIN
     Route: 048
     Dates: start: 20161216
  23. BGB-3111 [Suspect]
     Active Substance: INVESTIGATIONAL PRODUCT
     Dosage: CYCLE 8, 4 CAPSULES
     Route: 065
     Dates: start: 20160829, end: 20160920
  24. BGB-3111 [Suspect]
     Active Substance: INVESTIGATIONAL PRODUCT
     Dosage: CYCLE 11, 4 CAPSULES
     Route: 065
     Dates: start: 20161116, end: 20161219
  25. LORATADINE. [Concomitant]
     Active Substance: LORATADINE
     Dosage: PRE OBINUTUZUMAB INFUSION
     Route: 048
     Dates: start: 20160211
  26. OBINUTUZUMAB. [Suspect]
     Active Substance: OBINUTUZUMAB
     Dosage: C2D1, TOTAL VOLUME: 303.0 ML AT INFUSION RATE OF 100.0 MG/HOUR
     Route: 042
     Dates: start: 20160310, end: 20160310
  27. BGB-3111 [Suspect]
     Active Substance: INVESTIGATIONAL PRODUCT
     Dosage: CYCLE 13, 4 CAPSULES
     Route: 065
     Dates: start: 20170117, end: 20170220
  28. BGB-3111 [Suspect]
     Active Substance: INVESTIGATIONAL PRODUCT
     Dosage: CYCLE 15, 4 CAPSULES
     Route: 065
     Dates: start: 20170418, end: 20170612
  29. TAZOCIN [Concomitant]
     Active Substance: PIPERACILLIN SODIUM\TAZOBACTAM SODIUM
     Dosage: ONCE
     Route: 042
     Dates: start: 20160814, end: 20160814
  30. OBINUTUZUMAB. [Suspect]
     Active Substance: OBINUTUZUMAB
     Dosage: C1D16, TOTAL VOLUME: 304.0 ML AT INFUSION RATE OF 30.0 ML/HOUR
     Route: 042
     Dates: start: 20160225, end: 20160225
  31. OBINUTUZUMAB. [Suspect]
     Active Substance: OBINUTUZUMAB
     Dosage: C5D1, TOTAL VOLUME: 304.0 ML AT INFUSION RATE OF 400.0 MG/HOUR
     Route: 042
     Dates: start: 20160601, end: 20160601
  32. BGB-3111 [Suspect]
     Active Substance: INVESTIGATIONAL PRODUCT
     Indication: B-CELL LYMPHOMA
     Dosage: CYCLE 1, 4 CAPSULES
     Route: 065
     Dates: start: 20160210, end: 20160309
  33. BGB-3111 [Suspect]
     Active Substance: INVESTIGATIONAL PRODUCT
     Dosage: CYCLE 2, 4 CAPSULES
     Route: 065
     Dates: start: 20160310, end: 20160406
  34. BGB-3111 [Suspect]
     Active Substance: INVESTIGATIONAL PRODUCT
     Dosage: CYCLE 4, 4 CAPSULES
     Route: 065
     Dates: start: 20160504, end: 20160531
  35. BGB-3111 [Suspect]
     Active Substance: INVESTIGATIONAL PRODUCT
     Dosage: CYCLE 6, 4 CAPSULES
     Route: 065
     Dates: start: 20160629, end: 20160726
  36. BGB-3111 [Suspect]
     Active Substance: INVESTIGATIONAL PRODUCT
     Dosage: CYCLE 14, 4 CAPSULES
     Route: 065
     Dates: start: 20170221, end: 20170417
  37. FILGRASTIM [Concomitant]
     Active Substance: FILGRASTIM
     Dosage: ONCE
     Route: 058
     Dates: start: 20160209, end: 20160209
  38. NORMAL SALINE [Concomitant]
     Active Substance: SODIUM CHLORIDE
     Dosage: PRE OBINUTUZUMAB INFUSION OVER 1 TO 2 HOURS?ROUTE: INTRAVASCULAR
     Route: 065
     Dates: start: 20160211
  39. PARACETAMOL [Concomitant]
     Active Substance: ACETAMINOPHEN
     Dosage: ONCE
     Route: 048
     Dates: start: 20160814, end: 20160814
  40. DEXAMETHASONE. [Concomitant]
     Active Substance: DEXAMETHASONE
     Dosage: PRE OBINUTUZUMAB INFUSION
     Route: 042
     Dates: start: 20160211, end: 20160629
  41. BGB-3111 [Suspect]
     Active Substance: INVESTIGATIONAL PRODUCT
     Dosage: CYCLE 3, 4 CAPSULES
     Route: 065
     Dates: start: 20160407, end: 20160503
  42. BGB-3111 [Suspect]
     Active Substance: INVESTIGATIONAL PRODUCT
     Dosage: CYCLE 7, 4 CAPSULES
     Route: 065
     Dates: start: 20160727, end: 20160828
  43. BGB-3111 [Suspect]
     Active Substance: INVESTIGATIONAL PRODUCT
     Dosage: CYCLE 9, 4 CAPSULES
     Route: 065
     Dates: start: 20160921, end: 20161018
  44. BGB-3111 [Suspect]
     Active Substance: INVESTIGATIONAL PRODUCT
     Dosage: CYCLE 17, 4 CAPSULES
     Route: 065
     Dates: start: 20170808, end: 20171002
  45. FILGRASTIM [Concomitant]
     Active Substance: FILGRASTIM
     Dosage: ONCE
     Route: 058
     Dates: start: 20160207, end: 20160207
  46. FLU VACCINATION [Concomitant]
     Active Substance: INFLUENZA VIRUS VACCINE
     Dosage: ONCE
     Route: 030
     Dates: start: 20170412, end: 20170412

REACTIONS (2)
  - Neutropenia [Not Recovered/Not Resolved]
  - Peripheral swelling [Recovered/Resolved]

NARRATIVE: CASE EVENT DATE: 20160212
